FAERS Safety Report 5835299-8 (Version None)
Quarter: 2008Q3

REPORT INFORMATION
  Report Type: 
  Country: None (occurrence: None)
  Receive Date: 20080804
  Receipt Date: 20080722
  Transmission Date: 20090109
  Serious: Yes (Hospitalization)
  Sender: FDA-Public Use
  Company Number: 2008BI016605

PATIENT
  Age: 53 Year
  Sex: Female

DRUGS (3)
  1. AVONEX [Suspect]
     Indication: MULTIPLE SCLEROSIS
     Dosage: IM; 30 UG QW IM
     Route: 030
  2. NEURONTIN [Concomitant]
  3. ZOLOFT [Concomitant]

REACTIONS (2)
  - TRIGEMINAL NEURALGIA [None]
  - URINARY TRACT INFECTION [None]
